FAERS Safety Report 5898334-7 (Version None)
Quarter: 2008Q3

REPORT INFORMATION
  Report Type: 
  Country: None (occurrence: None)
  Receive Date: 20080925
  Receipt Date: 20070918
  Transmission Date: 20090109
  Serious: No
  Sender: FDA-Public Use
  Company Number: A0682740A

PATIENT
  Age: 33 Year
  Sex: Female

DRUGS (4)
  1. WELLBUTRIN XL [Suspect]
     Indication: DEPRESSION
     Dosage: 150MG PER DAY
     Route: 048
     Dates: start: 20070910
  2. CYMBALTA [Concomitant]
  3. BUSPAR [Concomitant]
  4. ORAL CONTRACEPTIVE [Concomitant]

REACTIONS (4)
  - COGNITIVE DISORDER [None]
  - HEART RATE INCREASED [None]
  - OROPHARYNGEAL PAIN [None]
  - PALPITATIONS [None]
